FAERS Safety Report 15129380 (Version 2)
Quarter: 2022Q2

REPORT INFORMATION
  Report Type: Spontaneous
  Country: US (occurrence: US)
  Receive Date: 20180711
  Receipt Date: 20220502
  Transmission Date: 20220721
  Serious: Yes (Other)
  Sender: FDA-Public Use
  Company Number: US-GLAXOSMITHKLINE-US2018120785

PATIENT
  Sex: Female

DRUGS (1)
  1. ADVAIR DISKUS [Suspect]
     Active Substance: FLUTICASONE PROPIONATE\SALMETEROL XINAFOATE
     Indication: Chronic obstructive pulmonary disease
     Dosage: UNK, 500/50 PWD 60
     Route: 055
     Dates: start: 1990

REACTIONS (3)
  - Blindness [Not Recovered/Not Resolved]
  - Visual impairment [Unknown]
  - Condition aggravated [Unknown]

NARRATIVE: CASE EVENT DATE: 20060101
